FAERS Safety Report 19772751 (Version 1)
Quarter: 2021Q3

REPORT INFORMATION
  Report Type: Spontaneous
  Country: US (occurrence: US)
  Receive Date: 20210901
  Receipt Date: 20210901
  Transmission Date: 20211014
  Serious: Yes (Disabling)
  Sender: FDA-Public Use
  Company Number: None

PATIENT
  Age: 19 Year
  Sex: Male
  Weight: 80.1 kg

DRUGS (1)
  1. FINASTERIDE (PROPECIA). GENERIC FROM  FORHIMS.COM [Suspect]
     Active Substance: FINASTERIDE
     Indication: ANDROGENETIC ALOPECIA
     Dosage: ?          OTHER FREQUENCY:EVERY OTHER DAY;?
     Route: 048

REACTIONS (16)
  - Testicular atrophy [None]
  - Disturbance in sexual arousal [None]
  - Feeling abnormal [None]
  - Aphasia [None]
  - Penile pain [None]
  - Penile vascular disorder [None]
  - Penile size reduced [None]
  - Testicular pain [None]
  - Emotional poverty [None]
  - Varicocele [None]
  - Memory impairment [None]
  - Sexual dysfunction [None]
  - Panic attack [None]
  - Dry skin [None]
  - Penis disorder [None]
  - Thinking abnormal [None]

NARRATIVE: CASE EVENT DATE: 20200714
